FAERS Safety Report 6682561-5 (Version None)
Quarter: 2010Q2

REPORT INFORMATION
  Report Type: 
  Country: None (occurrence: None)
  Receive Date: 20100415
  Receipt Date: 20100408
  Transmission Date: 20101027
  Serious: Yes (Death, Life-Threatening)
  Sender: FDA-Public Use
  Company Number: JP-BAYER-201011756BYL

PATIENT
  Age: 62 Year
  Sex: Male
  Weight: 57 kg

DRUGS (10)
  1. NEXAVAR [Suspect]
     Indication: HEPATIC NEOPLASM MALIGNANT
     Dosage: UNIT DOSE: 200 MG
     Route: 048
     Dates: start: 20090713, end: 20090727
  2. NEXAVAR [Suspect]
     Dosage: UNIT DOSE: 200 MG
     Route: 048
     Dates: start: 20090731, end: 20090816
  3. FLIVAS [Concomitant]
     Dosage: SINCE BEFORE ADMINISTRATION
     Route: 048
  4. UBRETID [Concomitant]
     Dosage: SINCE BEFORE ADMINISTRATION
     Route: 048
  5. OMEPRAL [Concomitant]
     Dosage: SINCE BEFORE ADMINISTRATION
     Route: 048
  6. GASTROM [Concomitant]
     Dosage: UNIT DOSE: 66.7 %
     Route: 048
  7. ASPIRIN [Concomitant]
     Indication: PROPHYLAXIS
     Dosage: UNIT DOSE: 100 MG
     Route: 048
  8. HUMULIN R [Concomitant]
     Dosage: SINCE BEFORE ADMINISTRATION
     Route: 058
  9. SAHNE [Concomitant]
     Indication: PROPHYLAXIS
     Dosage: SINCE BEFORE ADMINISTRATION
     Route: 061
  10. OXYCONTIN [Concomitant]
     Indication: CANCER PAIN
     Route: 048
     Dates: start: 20091204, end: 20091218

REACTIONS (15)
  - ALANINE AMINOTRANSFERASE INCREASED [None]
  - ASPARTATE AMINOTRANSFERASE INCREASED [None]
  - BLOOD ALBUMIN DECREASED [None]
  - BLOOD ALKALINE PHOSPHATASE INCREASED [None]
  - BLOOD BILIRUBIN INCREASED [None]
  - BLOOD SODIUM DECREASED [None]
  - CANCER PAIN [None]
  - DIARRHOEA [None]
  - ECZEMA [None]
  - GASTROENTERITIS BACTERIAL [None]
  - HAEMOGLOBIN DECREASED [None]
  - HEPATIC NEOPLASM MALIGNANT [None]
  - PALMAR-PLANTAR ERYTHRODYSAESTHESIA SYNDROME [None]
  - PLATELET COUNT DECREASED [None]
  - PROTHROMBIN TIME PROLONGED [None]
